FAERS Safety Report 5705921-5 (Version None)
Quarter: 2008Q2

REPORT INFORMATION
  Report Type: 
  Country: None (occurrence: None)
  Receive Date: 20080411
  Receipt Date: 20080403
  Transmission Date: 20081010
  Serious: Yes (Hospitalization, Disabling)
  Sender: FDA-Public Use
  Company Number: 144-C5013-08010404

PATIENT
  Age: 76 Year
  Sex: Male
  Weight: 75 kg

DRUGS (4)
  1. CC-5013 (LENALIDOMIDE) (CAPSULES) [Suspect]
     Indication: MULTIPLE MYELOMA
     Dosage: 25 MG, DAILY,ORAL
     Route: 048
     Dates: start: 20071123, end: 20080103
  2. DEXAMETHASONE TAB [Concomitant]
  3. FRAXIPARIN (HEPARIN-FRACTION, CALCIUM SALT) [Concomitant]
  4. ACETYLSALICYLIC ACID SRT [Concomitant]

REACTIONS (4)
  - ISCHAEMIC STROKE [None]
  - MICROANGIOPATHY [None]
  - PARAESTHESIA [None]
  - SOMNOLENCE [None]
